FAERS Safety Report 12974402 (Version 1)
Quarter: 2016Q4

REPORT INFORMATION
  Report Type: Report from Study
  Country: TR (occurrence: TR)
  Receive Date: 20161125
  Receipt Date: 20161125
  Transmission Date: 20170207
  Serious: Yes (Other)
  Sender: FDA-Public Use
  Company Number: TR-ROCHE-1856483

PATIENT

DRUGS (7)
  1. 5-FLUOROURACIL [Suspect]
     Active Substance: FLUOROURACIL
     Indication: OESOPHAGEAL CARCINOMA
     Dosage: 1 G/M2 FOR THE FIRST 4 DAYS OF WEEKS 1 AND 5 OF RADIOTHERAPY
     Route: 065
  2. CISPLATIN. [Suspect]
     Active Substance: CISPLATIN
     Indication: OESOPHAGEAL CARCINOMA
     Route: 065
  3. URACIL [Suspect]
     Active Substance: URACIL
     Indication: OESOPHAGEAL CARCINOMA
     Route: 048
  4. TEGAFUR [Suspect]
     Active Substance: TEGAFUR
     Indication: OESOPHAGEAL CARCINOMA
     Route: 048
  5. CAPECITABINE. [Suspect]
     Active Substance: CAPECITABINE
     Indication: OESOPHAGEAL CARCINOMA
     Route: 065
  6. PACLITAXEL. [Suspect]
     Active Substance: PACLITAXEL
     Indication: OESOPHAGEAL CARCINOMA
     Route: 065
  7. CISPLATIN. [Suspect]
     Active Substance: CISPLATIN
     Dosage: ON THE FIRST DAY OF
     Route: 065

REACTIONS (11)
  - Nausea [Unknown]
  - Vomiting [Unknown]
  - Pulmonary toxicity [Unknown]
  - Leukopenia [Unknown]
  - Cardiotoxicity [Unknown]
  - Oesophageal stenosis [Unknown]
  - Neutropenia [Unknown]
  - Febrile neutropenia [Unknown]
  - Anaemia [Unknown]
  - Oesophagitis [Unknown]
  - Thrombocytopenia [Unknown]
